FAERS Safety Report 11051306 (Version 1)
Quarter: 2015Q2

REPORT INFORMATION
  Report Type: Spontaneous
  Country: US (occurrence: None)
  Receive Date: 20150420
  Receipt Date: 20150420
  Transmission Date: 20150821
  Serious: Yes (Hospitalization)
  Sender: FDA-Public Use
  Company Number: None

PATIENT
  Age: 15 Year
  Sex: Female
  Weight: 78.02 kg

DRUGS (3)
  1. CLOZARIL [Suspect]
     Active Substance: CLOZAPINE
     Indication: SUICIDAL IDEATION
     Route: 048
     Dates: start: 20150402, end: 20150416
  2. VITAMIN D3 MULTIVITAMIN [Concomitant]
  3. CLOZARIL [Suspect]
     Active Substance: CLOZAPINE
     Indication: HALLUCINATION
     Route: 048
     Dates: start: 20150402, end: 20150416

REACTIONS (6)
  - Confusional state [None]
  - Hypertension [None]
  - Musculoskeletal stiffness [None]
  - Hyperhidrosis [None]
  - Heart rate increased [None]
  - Urinary incontinence [None]

NARRATIVE: CASE EVENT DATE: 20150416
